FAERS Safety Report 10301087 (Version 2)
Quarter: 2014Q3

REPORT INFORMATION
  Report Type: Spontaneous
  Country: FR (occurrence: FR)
  Receive Date: 20140714
  Receipt Date: 20140714
  Transmission Date: 20150326
  Serious: Yes (Hospitalization)
  Sender: FDA-Public Use
  Company Number: FR-BEH-2014043319

PATIENT
  Age: 1 Year
  Sex: Male
  Weight: 8 kg

DRUGS (5)
  1. KARDEGIC [Concomitant]
     Active Substance: ASPIRIN LYSINE
     Indication: KAWASAKI^S DISEASE
  2. POLYIONIQUE G10 [Concomitant]
     Indication: KAWASAKI^S DISEASE
  3. PRIVIGEN [Suspect]
     Active Substance: HUMAN IMMUNOGLOBULIN G
     Indication: KAWASAKI^S DISEASE
     Dosage: RESTARTED AT 2 ML/H, THEN PROGRESSIVELY INCREASED EVERY HALF HOUR UP TO 20 ML/H
     Route: 042
     Dates: start: 20140603, end: 20140603
  4. PRIVIGEN [Suspect]
     Active Substance: HUMAN IMMUNOGLOBULIN G
     Dosage: 2 G/KG AT THE INITIAL RATE OF 35 ML/H
     Route: 042
     Dates: start: 20140603, end: 20140603
  5. PARACETAMOL [Concomitant]
     Active Substance: ACETAMINOPHEN
     Indication: KAWASAKI^S DISEASE

REACTIONS (3)
  - Tremor [Recovered/Resolved]
  - Skin discolouration [Recovered/Resolved]
  - Tachycardia [Recovered/Resolved]

NARRATIVE: CASE EVENT DATE: 20140603
